FAERS Safety Report 11274710 (Version 1)
Quarter: 2015Q3

REPORT INFORMATION
  Report Type: Report from Study
  Country: AU (occurrence: AU)
  Receive Date: 20150716
  Receipt Date: 20150716
  Transmission Date: 20151125
  Serious: Yes (Death, Hospitalization, Disabling)
  Sender: FDA-Public Use
  Company Number: AU-ROCHE-1319731

PATIENT
  Age: 73 Year
  Sex: Male
  Weight: 54 kg

DRUGS (8)
  1. CAPECITABINE. [Suspect]
     Active Substance: CAPECITABINE
     Indication: COLORECTAL CANCER METASTATIC
     Dosage: LAST DOSE PRIOR TO SAE : 04/DEC/2013
     Route: 048
     Dates: start: 20131120, end: 20131204
  2. CAPECITABINE. [Suspect]
     Active Substance: CAPECITABINE
     Route: 048
     Dates: start: 20140124, end: 20140417
  3. OXALIPLATIN. [Suspect]
     Active Substance: OXALIPLATIN
     Route: 042
     Dates: start: 20140124, end: 20140417
  4. BEVACIZUMAB [Suspect]
     Active Substance: BEVACIZUMAB
     Indication: COLORECTAL CANCER METASTATIC
     Dosage: LAST DOSE PRIOR TO SAE: 20/NOV/2013
     Route: 042
     Dates: start: 20131120, end: 20131220
  5. PANAMAX (AUSTRALIA) [Concomitant]
     Route: 065
     Dates: start: 201310, end: 20140624
  6. VANCOMYCIN [Concomitant]
     Active Substance: VANCOMYCIN
  7. GENTAMYCIN [Concomitant]
     Active Substance: GENTAMICIN
  8. OXALIPLATIN. [Suspect]
     Active Substance: OXALIPLATIN
     Indication: COLORECTAL CANCER METASTATIC
     Dosage: LAST DOSE PRIOR TO SAE: 20/NOV/2013
     Route: 042
     Dates: start: 20131120, end: 20131120

REACTIONS (2)
  - Gangrene [Fatal]
  - Sepsis [Recovered/Resolved]

NARRATIVE: CASE EVENT DATE: 20131211
